FAERS Safety Report 7365670-7 (Version None)
Quarter: 2011Q1

REPORT INFORMATION
  Report Type: 
  Country: None (occurrence: None)
  Receive Date: 20110316
  Receipt Date: 20110316
  Transmission Date: 20110831
  Serious: Yes (Other)
  Sender: FDA-Public Use
  Company Number: None

PATIENT
  Sex: Female
  Weight: 50 kg

DRUGS (1)
  1. VFEND [Suspect]
     Indication: BRONCHOPULMONARY ASPERGILLOSIS
     Dosage: 200 MG BID ORAL
     Route: 048
     Dates: start: 20110209, end: 20110215

REACTIONS (2)
  - LIVER FUNCTION TEST ABNORMAL [None]
  - ELECTROLYTE IMBALANCE [None]
